FAERS Safety Report 5246434-7 (Version None)
Quarter: 2007Q1

REPORT INFORMATION
  Report Type: 
  Country: None (occurrence: None)
  Receive Date: 20070222
  Receipt Date: 20070222
  Transmission Date: 20070707
  Serious: Yes (Life-Threatening, Hospitalization)
  Sender: FDA-Public Use
  Company Number: None

PATIENT
  Age: 68 Year
  Sex: Male
  Weight: 43 kg

DRUGS (13)
  1. AMIODARONE HCL [Suspect]
     Indication: VENTRICULAR TACHYCARDIA
     Dosage: 800MG  DAILY  PO
     Route: 048
     Dates: start: 20060919, end: 20061025
  2. KLONOPIN [Concomitant]
  3. NITROGLYCERIN [Concomitant]
  4. PROTONIX [Concomitant]
  5. K-DUR 10 [Concomitant]
  6. ASPIRIN [Concomitant]
  7. DOCUSATE [Concomitant]
  8. LOPRESSOR [Concomitant]
  9. COMBIVENT [Concomitant]
  10. SPIRONOLACTONE [Concomitant]
  11. ZANTAC [Concomitant]
  12. ZOCOR [Concomitant]
  13. DIGOXIN [Concomitant]

REACTIONS (4)
  - AORTIC STENOSIS [None]
  - CARDIAC FAILURE [None]
  - PULMONARY OEDEMA [None]
  - PULMONARY TOXICITY [None]
